FAERS Safety Report 23662975 (Version 1)
Quarter: 2024Q1

REPORT INFORMATION
  Report Type: Spontaneous
  Country: ES (occurrence: ES)
  Receive Date: 20240322
  Receipt Date: 20240322
  Transmission Date: 20240410
  Serious: Yes (Hospitalization)
  Sender: FDA-Public Use
  Company Number: ES-HORIZON THERAPEUTICS-HZN-2024-002689

PATIENT

DRUGS (1)
  1. SODIUM PHENYLBUTYRATE [Suspect]
     Active Substance: SODIUM PHENYLBUTYRATE
     Indication: Ornithine transcarbamoylase deficiency
     Dosage: UNK TABLET
     Route: 065

REACTIONS (2)
  - Hyperammonaemia [Unknown]
  - Pregnancy [Unknown]
